FAERS Safety Report 10369458 (Version 1)
Quarter: 2014Q3

REPORT INFORMATION
  Report Type: Spontaneous
  Country: US (occurrence: US)
  Receive Date: 20140807
  Receipt Date: 20140807
  Transmission Date: 20150326
  Serious: Yes (Death, Other)
  Sender: FDA-Public Use
  Company Number: US-BAXTER-2014BAX045477

PATIENT
  Age: 69 Year
  Sex: Female

DRUGS (2)
  1. GAMMAGARD LIQUID [Suspect]
     Active Substance: HUMAN IMMUNOGLOBULIN G
     Indication: PRODUCT USED FOR UNKNOWN INDICATION
     Route: 065
  2. CYCLOPHOSPHAMIDE FOR INJECTION, USP [Suspect]
     Active Substance: CYCLOPHOSPHAMIDE
     Indication: PRODUCT USED FOR UNKNOWN INDICATION
     Route: 065

REACTIONS (11)
  - Multi-organ failure [Unknown]
  - Deep vein thrombosis [Unknown]
  - Upper gastrointestinal haemorrhage [Unknown]
  - Renal failure acute [Unknown]
  - Hepatic infarction [Unknown]
  - Subdural haemorrhage [Unknown]
  - Convulsion [Unknown]
  - Sepsis [Fatal]
  - Splenic infarction [Unknown]
  - Cytomegalovirus viraemia [Unknown]
  - Antiphospholipid syndrome [Unknown]
